FAERS Safety Report 5276383-X (Version None)
Quarter: 2007Q1

REPORT INFORMATION
  Report Type: 
  Country: None (occurrence: None)
  Receive Date: 20070326
  Receipt Date: 20070312
  Transmission Date: 20070707
  Serious: Yes (Other)
  Sender: FDA-Public Use
  Company Number: US-SANOFI-SYNTHELABO-A03200702179

PATIENT
  Sex: Male

DRUGS (4)
  1. BUSPAR [Concomitant]
     Dosage: UNK
     Route: 065
  2. EFFEXOR [Concomitant]
     Dosage: UNK
     Route: 065
  3. AMBIEN [Suspect]
     Indication: INSOMNIA
     Dosage: UP TO 5 X WEEK
     Route: 048
     Dates: end: 20061006
  4. WELLBUTRIN [Concomitant]
     Dosage: UNK
     Route: 065

REACTIONS (5)
  - ABNORMAL BEHAVIOUR [None]
  - AMNESIA [None]
  - EATING DISORDER [None]
  - ROAD TRAFFIC ACCIDENT [None]
  - SLEEP WALKING [None]
